FAERS Safety Report 5382360-0 (Version None)
Quarter: 2007Q3

REPORT INFORMATION
  Report Type: 
  Country: None (occurrence: None)
  Receive Date: 20070709
  Receipt Date: 20070628
  Transmission Date: 20080115
  Serious: Yes (Hospitalization)
  Sender: FDA-Public Use
  Company Number: IN-GILEAD-2007-0012561

PATIENT
  Age: 27 Year
  Sex: Female

DRUGS (8)
  1. EMTRICITABINE [Suspect]
     Indication: HIV INFECTION
     Route: 048
     Dates: start: 20060913
  2. TENOFOVIR DISOPROXIL FUMARATE [Suspect]
     Indication: HIV INFECTION
     Route: 048
     Dates: start: 20060913
  3. EFAVIRENZ [Suspect]
     Indication: HIV INFECTION
     Route: 048
     Dates: start: 20060913
  4. ISONIAZID [Concomitant]
  5. RIFAMPICIN [Concomitant]
  6. ETHAMBUTOL HYDROCHLORIDE [Concomitant]
  7. COTRIM [Concomitant]
  8. LEVOFLOXACIN [Concomitant]

REACTIONS (2)
  - DYSPNOEA [None]
  - PULMONARY TUBERCULOSIS [None]
